FAERS Safety Report 14690747 (Version 2)
Quarter: 2018Q2

REPORT INFORMATION
  Report Type: Spontaneous
  Country: US (occurrence: US)
  Receive Date: 20180328
  Receipt Date: 20180509
  Transmission Date: 20180711
  Serious: No
  Sender: FDA-Public Use
  Company Number: US-TAIHO ONCOLOGY INC-EU-2018-00417

PATIENT
  Age: 72 Year
  Sex: Male
  Weight: 70.82 kg

DRUGS (27)
  1. MAGNESIUM HYDROXIDE. [Concomitant]
     Active Substance: MAGNESIUM HYDROXIDE
     Dosage: NI
  2. FLUCONAZOLE. [Concomitant]
     Active Substance: FLUCONAZOLE
     Dosage: NI
  3. EZETIMIBE. [Concomitant]
     Active Substance: EZETIMIBE
     Dosage: NI
  4. LOMOTIL [Concomitant]
     Active Substance: ATROPINE SULFATE\DIPHENOXYLATE HYDROCHLORIDE
     Dosage: NI
  5. LONSURF [Suspect]
     Active Substance: TIPIRACIL HYDROCHLORIDE\TRIFLURIDINE
     Indication: RECTAL CANCER
     Dosage: CYCLE 4 STARTED ON 12FEB2018
     Route: 048
     Dates: start: 2017, end: 20180308
  6. BACLOFEN. [Concomitant]
     Active Substance: BACLOFEN
     Dosage: NI
  7. ACETYLSALICYLIC ACID [Concomitant]
     Active Substance: ASPIRIN
     Dosage: NI
     Dates: end: 20180314
  8. SENNOSIDE A+B [Concomitant]
     Active Substance: SENNOSIDES A AND B
     Dosage: NI
  9. MYRBETRIQ [Concomitant]
     Active Substance: MIRABEGRON
     Dosage: NI
  10. DEXAMETHASONE. [Concomitant]
     Active Substance: DEXAMETHASONE
     Dosage: NI
  11. CLONAZEPAM. [Concomitant]
     Active Substance: CLONAZEPAM
     Dosage: NI
  12. JANUMET [Concomitant]
     Active Substance: METFORMIN HYDROCHLORIDE\SITAGLIPTIN PHOSPHATE
     Dosage: NI
  13. ROSUVASTATIN. [Concomitant]
     Active Substance: ROSUVASTATIN
     Dosage: NI
  14. ONDANSETRON [Concomitant]
     Active Substance: ONDANSETRON
     Dosage: NI
  15. MAGNESIUM OXIDE. [Concomitant]
     Active Substance: MAGNESIUM OXIDE
     Dosage: NI
  16. LISINOPRIL. [Concomitant]
     Active Substance: LISINOPRIL
     Dosage: NI
  17. ESCITALOPRAM [Concomitant]
     Active Substance: ESCITALOPRAM OXALATE
     Dosage: NI
  18. OMEGA 3 [Concomitant]
     Active Substance: OMEGA-3 FATTY ACIDS
     Dosage: NI
  19. HEPARIN [Concomitant]
     Active Substance: HEPARIN SODIUM
     Dosage: NI
  20. ZOLPIDEM [Concomitant]
     Active Substance: ZOLPIDEM\ZOLPIDEM TARTRATE
     Dosage: NI
  21. TOLTERODINE [Concomitant]
     Active Substance: TOLTERODINE
     Dosage: ER
  22. BACTRIM DS [Concomitant]
     Active Substance: SULFAMETHOXAZOLE\TRIMETHOPRIM
     Dosage: NI
  23. OMEPRAZOLE. [Concomitant]
     Active Substance: OMEPRAZOLE
     Dosage: NI
  24. MEGESTROL [Concomitant]
     Active Substance: MEGESTROL
     Dosage: NI
  25. LEVOFLOXACIN. [Concomitant]
     Active Substance: LEVOFLOXACIN
     Dosage: NI
  26. GLIMEPIRIDE. [Concomitant]
     Active Substance: GLIMEPIRIDE
     Dosage: NI
  27. DOCUSATE [Concomitant]
     Active Substance: DOCUSATE
     Dosage: NI

REACTIONS (2)
  - Disease progression [Not Recovered/Not Resolved]
  - Carcinoembryonic antigen increased [Not Recovered/Not Resolved]

NARRATIVE: CASE EVENT DATE: 20180307
